FAERS Safety Report 9412018 (Version 1)
Quarter: 2013Q2

REPORT INFORMATION
  Report Type: Spontaneous
  Country: US (occurrence: None)
  Receive Date: 20130513
  Receipt Date: 20130513
  Transmission Date: 20140414
  Serious: Yes (Life-Threatening, Other)
  Sender: FDA-Public Use
  Company Number: FK201301517

PATIENT
  Age: 56 Year
  Sex: Male

DRUGS (3)
  1. PACLITAXEL [Suspect]
     Indication: NON-SMALL CELL LUNG CANCER
     Route: 042
  2. CARBOPLATIN (CARBOPLATIN) [Concomitant]
  3. ALOXI (PALONOSETRON HYDROCHLORIDE) [Concomitant]

REACTIONS (3)
  - Dyspepsia [None]
  - Flushing [None]
  - Dyspnoea [None]
